FAERS Safety Report 25352864 (Version 1)
Quarter: 2025Q2

REPORT INFORMATION
  Report Type: Report from Study
  Country: AU (occurrence: AU)
  Receive Date: 20250523
  Receipt Date: 20250523
  Transmission Date: 20250716
  Serious: Yes (Death, Other)
  Sender: PFIZER
  Company Number: AU-TAKEDA-2025TUS021712

PATIENT
  Age: 49 Year
  Sex: Male

DRUGS (2)
  1. BRENTUXIMAB VEDOTIN [Suspect]
     Active Substance: BRENTUXIMAB VEDOTIN
     Indication: Hodgkin^s disease refractory
     Route: 065
     Dates: start: 20250204
  2. VALGANCICLOVIR [Suspect]
     Active Substance: VALGANCICLOVIR
     Indication: Cytomegalovirus viraemia
     Route: 065
     Dates: start: 20250205, end: 20250215

REACTIONS (5)
  - Systemic inflammatory response syndrome [Fatal]
  - Multiple organ dysfunction syndrome [Fatal]
  - Hodgkin^s disease refractory [Fatal]
  - Neutropenia [Not Recovered/Not Resolved]
  - Sepsis [Unknown]

NARRATIVE: CASE EVENT DATE: 20250210
